APPROVED DRUG PRODUCT: CHLORPROPAMIDE
Active Ingredient: CHLORPROPAMIDE
Strength: 100MG
Dosage Form/Route: TABLET;ORAL
Application: A089321 | Product #001
Applicant: HALSEY DRUG CO INC
Approved: Jan 16, 1986 | RLD: No | RS: No | Type: DISCN